FAERS Safety Report 19672203 (Version 2)
Quarter: 2023Q2

REPORT INFORMATION
  Report Type: Spontaneous
  Country: US (occurrence: US)
  Receive Date: 20210808
  Receipt Date: 20230507
  Transmission Date: 20230722
  Serious: No
  Sender: FDA-Public Use
  Company Number: US-AMGEN-USASP2021120279

PATIENT
  Age: 58 Year
  Sex: Male

DRUGS (9)
  1. OTEZLA [Suspect]
     Active Substance: APREMILAST
     Indication: Psoriasis
     Dosage: 30 MILLIGRAM, BID
     Route: 048
     Dates: start: 20210129, end: 202106
  2. OTEZLA [Suspect]
     Active Substance: APREMILAST
     Dosage: 30 MILLIGRAM, BID
     Route: 048
  3. LOVASTATIN [Concomitant]
     Active Substance: LOVASTATIN
     Dosage: 10 MILLIGRAM
  4. TACLONEX [Concomitant]
     Active Substance: BETAMETHASONE DIPROPIONATE\CALCIPOTRIENE\CALCIPOTRIENE HYDRATE
     Dosage: UNK
  5. CLOBETASOL [Concomitant]
     Active Substance: CLOBETASOL
     Dosage: UNK
  6. CITALOPRAM [Concomitant]
     Active Substance: CITALOPRAM HYDROBROMIDE
     Dosage: UNK
  7. PANTOPRAZOLE [Concomitant]
     Active Substance: PANTOPRAZOLE
     Dosage: UNK
  8. DUOBRII [Concomitant]
     Active Substance: HALOBETASOL PROPIONATE\TAZAROTENE
  9. MELOXICAM [Concomitant]
     Active Substance: MELOXICAM
     Dosage: 15 MILLIGRAM

REACTIONS (3)
  - Illness [Recovered/Resolved]
  - Therapy non-responder [Not Recovered/Not Resolved]
  - Product dose omission issue [Not Recovered/Not Resolved]

NARRATIVE: CASE EVENT DATE: 20210601
